FAERS Safety Report 7093435-2 (Version None)
Quarter: 2010Q4

REPORT INFORMATION
  Report Type: 
  Country: None (occurrence: None)
  Receive Date: 20101110
  Receipt Date: 20101028
  Transmission Date: 20110411
  Serious: Yes (Hospitalization, Other)
  Sender: FDA-Public Use
  Company Number: US-AMGEN-QUU430317

PATIENT

DRUGS (5)
  1. NEULASTA [Suspect]
     Indication: CHEMOTHERAPY
     Dosage: 6 MG, Q2WK
     Route: 058
     Dates: start: 20100702
  2. NEULASTA [Suspect]
     Dosage: 6 MG, Q2WK
     Route: 058
     Dates: start: 20100702
  3. NEULASTA [Suspect]
     Dosage: 6 MG, Q2WK
     Route: 058
     Dates: start: 20100702
  4. DOXORUBICIN HYDROCHLORIDE [Concomitant]
     Indication: BREAST CANCER
     Dosage: UNK UNK, Q2WK
     Route: 042
     Dates: start: 20100701
  5. CYCLOPHOSPHAMIDE [Concomitant]
     Indication: BREAST CANCER
     Dosage: UNK UNK, Q2WK
     Route: 042
     Dates: start: 20100701

REACTIONS (2)
  - FEBRILE NEUTROPENIA [None]
  - NEUTROPENIA [None]
